FAERS Safety Report 11205975 (Version 2)
Quarter: 2015Q3

REPORT INFORMATION
  Report Type: Spontaneous
  Country: JP (occurrence: JP)
  Receive Date: 20150622
  Receipt Date: 20150721
  Transmission Date: 20151125
  Serious: Yes (Other)
  Sender: FDA-Public Use
  Company Number: JP-APOTEX-2015AP010007

PATIENT

DRUGS (6)
  1. PAXIL [Suspect]
     Active Substance: PAROXETINE HYDROCHLORIDE
     Indication: DEPRESSION
     Dosage: 20 MG, QD
     Route: 048
     Dates: start: 20050221, end: 20050302
  2. WARFARIN [Concomitant]
     Active Substance: WARFARIN
     Dosage: 1 UNK, DAILY
  3. RISUMIC [Concomitant]
     Active Substance: AMEZINIUM METILSULFATE
     Indication: PRODUCT USED FOR UNKNOWN INDICATION
     Dosage: UNK
     Route: 065
     Dates: end: 20050302
  4. WARFARIN [Concomitant]
     Active Substance: WARFARIN
     Indication: ATRIAL FIBRILLATION
     Dosage: 1 MG, DAILY
     Route: 065
     Dates: start: 200302, end: 20050302
  5. DIGOXIN. [Suspect]
     Active Substance: DIGOXIN
     Indication: ATRIAL FIBRILLATION
     Dosage: 0.25 MG, DAILY
     Route: 065
     Dates: start: 200302, end: 20050302
  6. DIGOXIN. [Suspect]
     Active Substance: DIGOXIN
     Dosage: 0.25 MG, UNK
     Route: 065
     Dates: start: 20050311

REACTIONS (20)
  - Atrial fibrillation [Unknown]
  - Rebound effect [Unknown]
  - Depressive symptom [Not Recovered/Not Resolved]
  - Dizziness [Unknown]
  - Abasia [Unknown]
  - Disorientation [Recovered/Resolved]
  - Electrocardiogram abnormal [Unknown]
  - Toxicity to various agents [Recovering/Resolving]
  - Abdominal symptom [Unknown]
  - Feeding disorder [Unknown]
  - Drug interaction [Unknown]
  - Bradycardia [Recovered/Resolved]
  - Ventricular extrasystoles [Unknown]
  - Nausea [Unknown]
  - Hallucination, visual [Unknown]
  - Atrioventricular block complete [Unknown]
  - Bedridden [Unknown]
  - Vomiting [Unknown]
  - Delirium [Recovered/Resolved]
  - Decreased appetite [Recovered/Resolved]

NARRATIVE: CASE EVENT DATE: 20050223
